FAERS Safety Report 10729408 (Version 4)
Quarter: 2015Q2

REPORT INFORMATION
  Report Type: Spontaneous
  Country: DE (occurrence: DE)
  Receive Date: 20150122
  Receipt Date: 20150420
  Transmission Date: 20150821
  Serious: Yes (Hospitalization)
  Sender: FDA-Public Use
  Company Number: DE-JNJFOC-20150107936

PATIENT
  Age: 38 Year
  Sex: Female
  Weight: 57.5 kg

DRUGS (5)
  1. LEPONEX [Suspect]
     Active Substance: CLOZAPINE
     Indication: SCHIZOPHRENIA, PARANOID TYPE
     Dosage: DOSE IN A DAY WAS 75MG-75MG-100MG-0MG
     Route: 065
  2. TAVOR [Concomitant]
     Active Substance: LORAZEPAM
     Route: 065
     Dates: start: 20141207
  3. XEPLION [Suspect]
     Active Substance: PALIPERIDONE PALMITATE
     Indication: SCHIZOPHRENIA, PARANOID TYPE
     Route: 030
     Dates: start: 20140806
  4. XEPLION [Suspect]
     Active Substance: PALIPERIDONE PALMITATE
     Indication: SCHIZOPHRENIA, PARANOID TYPE
     Route: 030
     Dates: start: 20140729
  5. XEPLION [Suspect]
     Active Substance: PALIPERIDONE PALMITATE
     Indication: SCHIZOPHRENIA, PARANOID TYPE
     Route: 030
     Dates: start: 20141222, end: 20141222

REACTIONS (6)
  - Psychomotor hyperactivity [Unknown]
  - Family stress [Unknown]
  - Cystitis [Unknown]
  - Extrapyramidal disorder [Unknown]
  - Rhabdomyolysis [Recovered/Resolved]
  - Delusion [Unknown]

NARRATIVE: CASE EVENT DATE: 20141230
